FAERS Safety Report 10062259 (Version 1)
Quarter: 2014Q1

REPORT INFORMATION
  Report Type: Spontaneous
  Country: US (occurrence: None)
  Receive Date: 20140312
  Receipt Date: 20140312
  Transmission Date: 20141002
  Serious: Yes (Other)
  Sender: FDA-Public Use
  Company Number: E2080-00620-SPO-US

PATIENT
  Age: 16 Year
  Sex: Male

DRUGS (2)
  1. BANZEL [Suspect]
     Indication: EPILEPSY
     Route: 048
     Dates: start: 201207
  2. TRILEPTAL (OXCARBAZEPINE) [Concomitant]

REACTIONS (5)
  - Grand mal convulsion [None]
  - Logorrhoea [None]
  - Abnormal behaviour [None]
  - Chromaturia [None]
  - Incontinence [None]
